FAERS Safety Report 6245694-3 (Version None)
Quarter: 2009Q2

REPORT INFORMATION
  Report Type: 
  Country: None (occurrence: None)
  Receive Date: 20090625
  Receipt Date: 20090610
  Transmission Date: 20091009
  Serious: Yes (Other)
  Sender: FDA-Public Use
  Company Number: AU-GENENTECH-284154

PATIENT
  Sex: Male

DRUGS (7)
  1. BEVACIZUMAB [Suspect]
     Indication: RENAL CELL CARCINOMA
     Dosage: 10 MG/KG, UNK
     Route: 065
     Dates: start: 20090211, end: 20090520
  2. TEMSIROLIMUS [Suspect]
     Indication: RENAL CELL CARCINOMA
     Dosage: 25 MG/KG, 1/WEEK
     Route: 042
     Dates: start: 20090211
  3. TEMSIROLIMUS [Suspect]
     Dosage: 20 MG, 1/WEEK
     Dates: start: 20090408, end: 20090513
  4. TEMSIROLIMUS [Suspect]
     Dosage: 15 MG, 1/WEEK
     Dates: start: 20090520
  5. NAPROXEN [Concomitant]
     Indication: DRUG USE FOR UNKNOWN INDICATION
     Dosage: UNK
     Dates: start: 20050101
  6. PARACETAMOL [Concomitant]
     Indication: DRUG USE FOR UNKNOWN INDICATION
     Dosage: UNK
     Dates: start: 20090214
  7. TEMAZEPAM [Concomitant]
     Indication: DRUG USE FOR UNKNOWN INDICATION
     Dosage: UNK
     Dates: start: 20090308

REACTIONS (1)
  - INTERSTITIAL LUNG DISEASE [None]
